FAERS Safety Report 13681875 (Version 1)
Quarter: 2017Q2

REPORT INFORMATION
  Report Type: Report from Study
  Country: BR (occurrence: BR)
  Receive Date: 20170623
  Receipt Date: 20170623
  Transmission Date: 20170830
  Serious: Yes (Other)
  Sender: FDA-Public Use
  Company Number: PHHY2017BR092615

PATIENT
  Sex: Female
  Weight: 69 kg

DRUGS (2)
  1. GILENYA [Suspect]
     Active Substance: FINGOLIMOD HYDROCHLORIDE
     Indication: MULTIPLE SCLEROSIS
     Dosage: 0.5 MG, QD
     Route: 048
     Dates: start: 201612
  2. LOTAR [Concomitant]
     Active Substance: AMLODIPINE\LOSARTAN
     Indication: HYPERTENSION
     Dosage: 100 MG, QD
     Route: 048

REACTIONS (1)
  - Immunodeficiency [Not Recovered/Not Resolved]
